FAERS Safety Report 16659208 (Version 3)
Quarter: 2020Q1

REPORT INFORMATION
  Report Type: Report from Study
  Country: None (occurrence: US)
  Receive Date: 20190802
  Receipt Date: 20200218
  Transmission Date: 20200409
  Serious: Yes (Hospitalization)
  Sender: FDA-Public Use
  Company Number: US-ABBVIE-19K-163-2848603-00

PATIENT
  Age: 70 Year
  Sex: Female
  Weight: 52.66 kg

DRUGS (8)
  1. PREDNISONE. [Suspect]
     Active Substance: PREDNISONE
     Indication: GLOMERULONEPHRITIS
  2. MAGNESIUM [Concomitant]
     Active Substance: MAGNESIUM
     Indication: PRODUCT USED FOR UNKNOWN INDICATION
  3. HUMIRA [Suspect]
     Active Substance: ADALIMUMAB
     Indication: CROHN^S DISEASE
     Route: 058
     Dates: start: 20190508, end: 20190710
  4. COLESTIPOL [Concomitant]
     Active Substance: COLESTIPOL
     Indication: FREQUENT BOWEL MOVEMENTS
     Route: 065
  5. COQ 10 [Concomitant]
     Active Substance: UBIDECARENONE
     Indication: PRODUCT USED FOR UNKNOWN INDICATION
  6. HUMIRA [Suspect]
     Active Substance: ADALIMUMAB
     Indication: COLITIS ULCERATIVE
     Route: 058
     Dates: start: 20190710, end: 2019
  7. PREDNISONE. [Suspect]
     Active Substance: PREDNISONE
     Indication: COLITIS ULCERATIVE
     Route: 065
  8. HUMIRA [Suspect]
     Active Substance: ADALIMUMAB
     Route: 058
     Dates: start: 201904

REACTIONS (13)
  - Dehydration [Recovering/Resolving]
  - Fatigue [Unknown]
  - Blood sodium decreased [Recovering/Resolving]
  - Blood magnesium decreased [Recovering/Resolving]
  - Wrong technique in product usage process [Unknown]
  - Loss of consciousness [Recovered/Resolved]
  - Blood electrolytes abnormal [Unknown]
  - Drug ineffective [Unknown]
  - Weight increased [Unknown]
  - Therapeutic product effect incomplete [Not Recovered/Not Resolved]
  - Asthenia [Unknown]
  - Oedema [Unknown]
  - Blood magnesium abnormal [Unknown]

NARRATIVE: CASE EVENT DATE: 2019
